FAERS Safety Report 4919764-3 (Version None)
Quarter: 2006Q1

REPORT INFORMATION
  Report Type: 
  Country: None (occurrence: None)
  Receive Date: 20060217
  Receipt Date: 20060206
  Transmission Date: 20060701
  Serious: Yes (Other)
  Sender: FDA-Public Use
  Company Number: 2006018732

PATIENT
  Age: 64 Year
  Sex: Male
  Weight: 95.709 kg

DRUGS (4)
  1. LIPITOR [Suspect]
     Indication: BLOOD CHOLESTEROL
     Dosage: 20 MG (20 MG, 1 IN 1 D), ORAL
     Route: 048
  2. PHENYTOIN [Concomitant]
  3. FOLIC ACID [Concomitant]
  4. LEVOTHYROXINE SODIUM [Concomitant]

REACTIONS (7)
  - CONSTIPATION [None]
  - CONVULSION [None]
  - ENCEPHALITIS VIRAL [None]
  - FLATULENCE [None]
  - MYALGIA [None]
  - THROMBOSIS [None]
  - WEST NILE VIRAL INFECTION [None]
